FAERS Safety Report 16485129 (Version 1)
Quarter: 2019Q2

REPORT INFORMATION
  Report Type: Spontaneous
  Country: US (occurrence: US)
  Receive Date: 20190627
  Receipt Date: 20190627
  Transmission Date: 20190711
  Serious: No
  Sender: FDA-Public Use
  Company Number: US-TEVA-2019-US-1067922

PATIENT
  Age: 71 Year
  Sex: Female

DRUGS (1)
  1. DULOXETINE. [Suspect]
     Active Substance: DULOXETINE
     Indication: DEPRESSION
     Route: 065

REACTIONS (2)
  - Rapid eye movement sleep behaviour disorder [Unknown]
  - Rapid eye movements sleep abnormal [Unknown]
